FAERS Safety Report 8213855-X (Version None)
Quarter: 2012Q1

REPORT INFORMATION
  Report Type: 
  Country: None (occurrence: None)
  Receive Date: 20120316
  Receipt Date: 20120308
  Transmission Date: 20120608
  Serious: Yes (Hospitalization)
  Sender: FDA-Public Use
  Company Number: US-BIOGENIDEC-2012BI008647

PATIENT
  Age: 37 Year
  Sex: Female

DRUGS (4)
  1. TYSABRI [Suspect]
     Indication: MULTIPLE SCLEROSIS
     Route: 042
     Dates: start: 20110613, end: 20111010
  2. AVONEX [Concomitant]
     Indication: MULTIPLE SCLEROSIS
     Route: 030
     Dates: start: 20110314
  3. AVONEX [Concomitant]
     Route: 030
     Dates: start: 20050505, end: 20070101
  4. AVONEX [Concomitant]
     Route: 030
     Dates: start: 20080623, end: 20101001

REACTIONS (1)
  - MULTIPLE SCLEROSIS RELAPSE [None]
